FAERS Safety Report 26217660 (Version 1)
Quarter: 2025Q4

REPORT INFORMATION
  Report Type: Report from Study
  Country: CN (occurrence: CN)
  Receive Date: 20251231
  Receipt Date: 20251231
  Transmission Date: 20260118
  Serious: Yes (Death)
  Sender: ABBVIE
  Company Number: CN-PFIZER INC-PV202500141655

PATIENT
  Age: 57 Year
  Sex: Male

DRUGS (2)
  1. AVIBACTAM SODIUM\CEFTAZIDIME [Suspect]
     Active Substance: AVIBACTAM SODIUM\CEFTAZIDIME
     Indication: Sepsis
     Dosage: UNK UNK, 3X/DAY (Q8H)
     Route: 041
     Dates: start: 2025
  2. AVIBACTAM SODIUM\CEFTAZIDIME [Suspect]
     Active Substance: AVIBACTAM SODIUM\CEFTAZIDIME
     Indication: Sepsis
     Dosage: 2.5 G, 3X/DAY (Q8H)
     Route: 041
     Dates: start: 202510

REACTIONS (3)
  - Pancreatitis [Fatal]
  - Condition aggravated [Fatal]
  - Infection [Fatal]

NARRATIVE: CASE EVENT DATE: 20251211
